FAERS Safety Report 4907025-8 (Version None)
Quarter: 2006Q1

REPORT INFORMATION
  Report Type: 
  Country: None (occurrence: None)
  Receive Date: 20060206
  Receipt Date: 20060124
  Transmission Date: 20060701
  Serious: Yes (Hospitalization)
  Sender: FDA-Public Use
  Company Number: 200610322BWH

PATIENT
  Age: 66 Year
  Sex: Female
  Weight: 81.2 kg

DRUGS (4)
  1. SORAFENIB [Suspect]
     Indication: METASTATIC RENAL CELL CARCINOMA
     Dosage: 400 MG, BID, ORAL
     Route: 048
     Dates: start: 20051102, end: 20051227
  2. COMPAZINE [Concomitant]
  3. ZOCOR [Concomitant]
  4. FOLIC ACID [Concomitant]

REACTIONS (3)
  - AUTOIMMUNE HEPATITIS [None]
  - GLOBULINS INCREASED [None]
  - HYPERTHYROIDISM [None]
